FAERS Safety Report 23607123 (Version 3)
Quarter: 2024Q2

REPORT INFORMATION
  Report Type: Spontaneous
  Country: AT (occurrence: AT)
  Receive Date: 20240307
  Receipt Date: 20240429
  Transmission Date: 20240716
  Serious: Yes (Hospitalization)
  Sender: FDA-Public Use
  Company Number: AT-ELI_LILLY_AND_COMPANY-AT202402016700

PATIENT
  Age: 8 Year
  Sex: Female
  Weight: 39 kg

DRUGS (3)
  1. ATOMOXETINE HYDROCHLORIDE [Suspect]
     Active Substance: ATOMOXETINE HYDROCHLORIDE
     Indication: Attention deficit hyperactivity disorder
     Dosage: 20 MG, DAILY
     Route: 065
  2. ATOMOXETINE HYDROCHLORIDE [Suspect]
     Active Substance: ATOMOXETINE HYDROCHLORIDE
     Indication: Intellectual disability
     Dosage: 10 MG, EACH MORNING, UPTITRATION TO 28 MG DAILY
     Route: 048
     Dates: start: 20231018, end: 20240103
  3. ATOMOXETINE HYDROCHLORIDE [Suspect]
     Active Substance: ATOMOXETINE HYDROCHLORIDE
     Dosage: 18 MG, EACH EVENING, UPTITRATION TO 28 MG DAILY
     Route: 048
     Dates: start: 20231018, end: 20240103

REACTIONS (4)
  - Cyanosis [Not Recovered/Not Resolved]
  - General physical health deterioration [Not Recovered/Not Resolved]
  - Asthenia [Not Recovered/Not Resolved]
  - Urinary retention [Recovered/Resolved]

NARRATIVE: CASE EVENT DATE: 20231201
